FAERS Safety Report 13093516 (Version 1)
Quarter: 2017Q1

REPORT INFORMATION
  Report Type: Spontaneous
  Country: ES (occurrence: ES)
  Receive Date: 20170106
  Receipt Date: 20170106
  Transmission Date: 20170428
  Serious: Yes (Other)
  Sender: FDA-Public Use
  Company Number: ES-TEVA-725001ISR

PATIENT
  Age: 72 Year
  Sex: Female
  Weight: 81 kg

DRUGS (9)
  1. CARVEDILOL RATIOPHARM 6.25MG COMPRIMIDOS [Suspect]
     Active Substance: CARVEDILOL
     Indication: CARDIAC FAILURE
     Dosage: 12.5 MILLIGRAM DAILY;
     Route: 048
     Dates: start: 20130401
  2. HIDROCLOROTIAZIDA KERN PHARMA 25MG COMPRIMIDOS, 20 COMPRIMIDOS [Suspect]
     Active Substance: HYDROCHLOROTHIAZIDE
     Indication: CARDIAC FAILURE
     Dosage: 25 MILLIGRAM DAILY;
     Route: 048
     Dates: start: 20160502
  3. ENALAPRIL MYLAN 5MG COMPRIMIDOS EFG, 60COMPRIMIDOS [Suspect]
     Active Substance: ENALAPRIL
     Indication: CARDIAC DISORDER
     Dosage: 5 MILLIGRAM DAILY;
     Route: 048
     Dates: start: 20160901
  4. ELECOR 25MG COMPRIMIDOS RECUBIERTOS CON PELICULA, 30 COMPRIMIDOS [Suspect]
     Active Substance: EPLERENONE
     Indication: CARDIAC FAILURE
     Dosage: 25 MILLIGRAM DAILY;
     Route: 048
     Dates: start: 20160502
  5. PULMICORT TURBUHALER [Suspect]
     Active Substance: BUDESONIDE
     Indication: CARDIAC FAILURE
     Dosage: 200 MICROGRAM DAILY; DOSAGE REDUCED TO 400MICROGRAM. FREQUENCY: 2 DAYS.
     Route: 048
     Dates: start: 20160501
  6. SIMVASTATINA RATIO 40MG COMPRIMIDOS RECUBIERTOS CON PELICULA EFG, 28 C [Suspect]
     Active Substance: SIMVASTATIN
     Indication: CARDIAC FAILURE
     Dosage: 40 MILLIGRAM DAILY;
     Route: 048
     Dates: start: 20160502
  7. ATROVENT [Suspect]
     Active Substance: IPRATROPIUM BROMIDE
     Indication: CARDIAC FAILURE
     Dosage: 20 MICROGRAM DAILY;
     Route: 048
     Dates: start: 20160502
  8. ADIRO 100MG COMPRIMIDOS GASTRORRESISTENTES, 30 COMPRIMIDOS [Suspect]
     Active Substance: ASPIRIN
     Indication: CARDIAC FAILURE
     Dosage: 100 MILLIGRAM DAILY;
     Route: 048
     Dates: start: 20160501
  9. OMEPRAZOL RATIO 20MG CAPSULAS DURAS GASTRORRESISTENTES, 28 CAPSULAS [Suspect]
     Active Substance: OMEPRAZOLE
     Indication: CARDIAC FAILURE
     Dosage: 20 MILLIGRAM DAILY;
     Route: 048
     Dates: start: 20160502

REACTIONS (4)
  - Muscle disorder [Not Recovered/Not Resolved]
  - Dysphagia [Not Recovered/Not Resolved]
  - Urinary tract disorder [Not Recovered/Not Resolved]
  - Skin disorder [Not Recovered/Not Resolved]

NARRATIVE: CASE EVENT DATE: 20161001
